FAERS Safety Report 7490874-2 (Version None)
Quarter: 2011Q2

REPORT INFORMATION
  Report Type: 
  Country: None (occurrence: None)
  Receive Date: 20110519
  Receipt Date: 20110511
  Transmission Date: 20111010
  Serious: Yes (Death)
  Sender: FDA-Public Use
  Company Number: JP-BAXTER-2011BH016091

PATIENT
  Age: 76 Year
  Sex: Female

DRUGS (1)
  1. EXTRANEAL [Suspect]
     Indication: RENAL FAILURE CHRONIC
     Route: 033
     Dates: start: 20101001, end: 20110510

REACTIONS (2)
  - ASPHYXIA [None]
  - TONSILLAR HYPERTROPHY [None]
